FAERS Safety Report 4409989-8 (Version None)
Quarter: 2004Q3

REPORT INFORMATION
  Report Type: 
  Country: None (occurrence: None)
  Receive Date: 20040728
  Receipt Date: 20040708
  Transmission Date: 20050211
  Serious: Yes (Hospitalization)
  Sender: FDA-Public Use
  Company Number: SE-ROCHE-373776

PATIENT
  Age: 41 Year
  Sex: Female

DRUGS (41)
  1. MYCOPHENOLATE MOFETIL [Suspect]
     Route: 065
     Dates: start: 20031009, end: 20031009
  2. CYCLOSPORINE [Suspect]
     Route: 065
     Dates: start: 20031007, end: 20031007
  3. CYCLOSPORINE [Suspect]
     Route: 065
     Dates: start: 20031008, end: 20031012
  4. CYCLOSPORINE [Suspect]
     Route: 065
     Dates: start: 20031013, end: 20031016
  5. CYCLOSPORINE [Suspect]
     Route: 065
     Dates: start: 20031017, end: 20031017
  6. CYCLOSPORINE [Suspect]
     Route: 065
     Dates: start: 20031018, end: 20031104
  7. CYCLOSPORINE [Suspect]
     Route: 065
     Dates: start: 20031105, end: 20031116
  8. CYCLOSPORINE [Suspect]
     Route: 065
     Dates: start: 20031117, end: 20031229
  9. CYCLOSPORINE [Suspect]
     Route: 065
     Dates: start: 20031230, end: 20040118
  10. CYCLOSPORINE [Suspect]
     Route: 065
     Dates: start: 20040119, end: 20040202
  11. CYCLOSPORINE [Suspect]
     Route: 065
     Dates: start: 20040203, end: 20040405
  12. CYCLOSPORINE [Suspect]
     Route: 065
     Dates: start: 20040406, end: 20040503
  13. CYCLOSPORINE [Suspect]
     Dosage: 175 MG + 150 MG
     Route: 065
     Dates: start: 20040504, end: 20040505
  14. CYCLOSPORINE [Suspect]
     Route: 065
     Dates: start: 20040506, end: 20040520
  15. CYCLOSPORINE [Suspect]
     Dosage: 150 MG + 125 MG
     Route: 065
     Dates: start: 20040521, end: 20040606
  16. CYCLOSPORINE [Suspect]
     Route: 065
     Dates: start: 20040607
  17. METHYLPREDNISOLONE [Suspect]
     Route: 065
     Dates: start: 20031009, end: 20031009
  18. PREDNISOLONE [Suspect]
     Route: 065
     Dates: start: 20031009, end: 20031009
  19. PREDNISOLONE [Suspect]
     Route: 065
     Dates: start: 20031010, end: 20031010
  20. PREDNISOLONE [Suspect]
     Route: 065
     Dates: start: 20031011, end: 20031011
  21. PREDNISOLONE [Suspect]
     Route: 065
     Dates: start: 20031012, end: 20031012
  22. PREDNISOLONE [Suspect]
     Route: 065
     Dates: start: 20031013, end: 20031013
  23. PREDNISOLONE [Suspect]
     Route: 065
     Dates: start: 20031014, end: 20031014
  24. PREDNISOLONE [Suspect]
     Route: 065
     Dates: start: 20031015, end: 20031015
  25. PREDNISOLONE [Suspect]
     Route: 065
     Dates: start: 20031016, end: 20031016
  26. PREDNISOLONE [Suspect]
     Route: 065
     Dates: start: 20031017, end: 20031106
  27. PREDNISOLONE [Suspect]
     Route: 065
     Dates: start: 20031107, end: 20031210
  28. PREDNISOLONE [Suspect]
     Route: 065
     Dates: start: 20031211, end: 20040108
  29. PREDNISOLONE [Suspect]
     Route: 065
     Dates: start: 20040109, end: 20040513
  30. PREDNISOLONE [Suspect]
     Route: 065
     Dates: start: 20040514, end: 20040517
  31. PREDNISOLONE [Suspect]
     Route: 065
     Dates: start: 20040518, end: 20040518
  32. PREDNISOLONE [Suspect]
     Route: 065
     Dates: start: 20040519, end: 20040519
  33. PREDNISOLONE [Suspect]
     Route: 065
     Dates: start: 20040520
  34. ENALAPRIL MALEATE [Concomitant]
  35. CEFUROXIM [Concomitant]
     Indication: PROPHYLAXIS
     Dates: start: 20031009, end: 20031018
  36. SULFAMETHOXAZOLE AND TRIMETHOPRIM [Concomitant]
     Dates: start: 20031012
  37. MECILLINAM [Concomitant]
     Dates: start: 20031017, end: 20031027
  38. AMOXICILLIN [Concomitant]
     Dates: start: 20031120, end: 20040128
  39. NORFLOXACIN [Concomitant]
     Dates: start: 20031127, end: 20031218
  40. CEFTIBUTEN [Concomitant]
     Dates: start: 20040704
  41. UNKNOWN DRUG [Concomitant]
     Dosage: ^CEFOLAXIM^
     Dates: start: 20040701, end: 20040704

REACTIONS (5)
  - COMPLICATIONS OF TRANSPLANTED KIDNEY [None]
  - HYPERPARATHYROIDISM [None]
  - HYPERTHYROIDISM [None]
  - LYMPHOCELE [None]
  - PYREXIA [None]
